FAERS Safety Report 13656710 (Version 2)
Quarter: 2017Q2

REPORT INFORMATION
  Report Type: Spontaneous
  Country: US (occurrence: US)
  Receive Date: 20170615
  Receipt Date: 20170619
  Transmission Date: 20170830
  Serious: Yes (Hospitalization)
  Sender: FDA-Public Use
  Company Number: US-FRESENIUS MEDICAL CARE RENAL THERAPIES GROUP-FMC-1706-000631

PATIENT
  Age: 80 Year
  Sex: Male
  Weight: 77 kg

DRUGS (1)
  1. DELFLEX WITH DEXTROSE 1.5% LOW MAGNESIUM LOW CALCIUM [Suspect]
     Active Substance: CALCIUM CHLORIDE\DEXTROSE\MAGNESIUM CHLORIDE\SODIUM CHLORIDE\SODIUM LACTATE
     Indication: END STAGE RENAL DISEASE
     Dosage: 14,500ML FOR TREATMENT
     Route: 033
     Dates: start: 2014

REACTIONS (1)
  - Ultrafiltration failure [Recovering/Resolving]

NARRATIVE: CASE EVENT DATE: 20170403
